FAERS Safety Report 17457729 (Version 3)
Quarter: 2020Q2

REPORT INFORMATION
  Report Type: Report from Study
  Country: US (occurrence: US)
  Receive Date: 20200225
  Receipt Date: 20200526
  Transmission Date: 20200713
  Serious: No
  Sender: FDA-Public Use
  Company Number: NVSC2020US051164

PATIENT
  Sex: Female

DRUGS (1)
  1. GILENYA [Suspect]
     Active Substance: FINGOLIMOD HYDROCHLORIDE
     Indication: MULTIPLE SCLEROSIS
     Dosage: 0.5 MG, QOD, EVERY OTHER AM AROUND 09:30
     Route: 048
     Dates: start: 20190518

REACTIONS (5)
  - Anxiety [Unknown]
  - Dyspnoea exertional [Unknown]
  - Laboratory test abnormal [Unknown]
  - Blood pressure systolic increased [Unknown]
  - Prescribed underdose [Unknown]
